FAERS Safety Report 6902292-3 (Version None)
Quarter: 2010Q3

REPORT INFORMATION
  Report Type: 
  Country: None (occurrence: None)
  Receive Date: 20100803
  Receipt Date: 20080502
  Transmission Date: 20110219
  Serious: Yes (Other)
  Sender: FDA-Public Use
  Company Number: US-PFIZER INC-2008005970

PATIENT
  Sex: Female
  Weight: 106.6 kg

DRUGS (14)
  1. LYRICA [Suspect]
     Indication: FIBROMYALGIA
     Dates: start: 20071218, end: 20080116
  2. CYMBALTA [Concomitant]
  3. BUSPAR [Concomitant]
  4. ROZEREM [Concomitant]
  5. KLONOPIN [Concomitant]
  6. DOXYCYCLINE [Concomitant]
  7. ULTRAM [Concomitant]
  8. FLEXERIL [Concomitant]
  9. LODINE [Concomitant]
  10. PROTONIX [Concomitant]
  11. ZESTRIL [Concomitant]
  12. ALBUTEROL [Concomitant]
  13. FLOVENT [Concomitant]
  14. NASACORT AQ [Concomitant]

REACTIONS (7)
  - BACK DISORDER [None]
  - DRUG INEFFECTIVE [None]
  - DYSPNOEA [None]
  - LETHARGY [None]
  - LIMB DISCOMFORT [None]
  - SLEEP STUDY ABNORMAL [None]
  - WEIGHT INCREASED [None]
